FAERS Safety Report 6412703-8 (Version None)
Quarter: 2009Q4

REPORT INFORMATION
  Report Type: 
  Country: None (occurrence: None)
  Receive Date: 20091023
  Receipt Date: 20091020
  Transmission Date: 20100525
  Serious: Yes (Death, Hospitalization, Other)
  Sender: FDA-Public Use
  Company Number: PHHY2009CA21921

PATIENT
  Sex: Female

DRUGS (1)
  1. SANDOSTATIN LAR [Suspect]
     Indication: HEPATIC NEOPLASM MALIGNANT
     Dosage: 30 MG EVERY 4 WEEKS
     Route: 030
     Dates: start: 20080807, end: 20091008

REACTIONS (11)
  - BALANCE DISORDER [None]
  - BLOOD GLUCOSE FLUCTUATION [None]
  - DEATH [None]
  - DECREASED APPETITE [None]
  - FALL [None]
  - HAEMOGLOBIN DECREASED [None]
  - HEAD INJURY [None]
  - HYPERSOMNIA [None]
  - MALIGNANT NEOPLASM PROGRESSION [None]
  - MUSCULAR WEAKNESS [None]
  - RENAL FAILURE [None]
